FAERS Safety Report 21163128 (Version 2)
Quarter: 2022Q3

REPORT INFORMATION
  Report Type: Spontaneous
  Country: US (occurrence: US)
  Receive Date: 20220802
  Receipt Date: 20220826
  Transmission Date: 20221026
  Serious: No
  Sender: FDA-Public Use
  Company Number: US-PFIZER INC-202200896498

PATIENT
  Age: 79 Year
  Sex: Female
  Weight: 40.816 kg

DRUGS (4)
  1. NORVASC [Interacting]
     Active Substance: AMLODIPINE BESYLATE
     Indication: Blood pressure decreased
     Dosage: 2.5 MG, AS NEEDED
  2. XARELTO [Interacting]
     Active Substance: RIVAROXABAN
     Indication: Anticoagulant therapy
     Dosage: 145 NOT SURE IF MG OR MCG, 1X/DAY
  3. LINZESS [Concomitant]
     Active Substance: LINACLOTIDE
     Indication: Constipation
     Dosage: 15, NOT SURE IF MG OR MCG, 1X/DAY
  4. PAXLOVID [Concomitant]
     Active Substance: NIRMATRELVIR\RITONAVIR
     Indication: COVID-19 treatment
     Dosage: 100 MG RITONAVIR/150 MG NIRMATRELVIR, 2X/DAY
     Dates: start: 20220623

REACTIONS (3)
  - Labelled drug-drug interaction medication error [Unknown]
  - Dizziness [Unknown]
  - Fatigue [Unknown]
